FAERS Safety Report 18485303 (Version 1)
Quarter: 2020Q4

REPORT INFORMATION
  Report Type: Report from Study
  Country: JP (occurrence: JP)
  Receive Date: 20201110
  Receipt Date: 20201110
  Transmission Date: 20210114
  Serious: Yes (Hospitalization)
  Sender: FDA-Public Use
  Company Number: JP-ELI_LILLY_AND_COMPANY-JP202010013199

PATIENT
  Sex: Male

DRUGS (1)
  1. FORTEO [Suspect]
     Active Substance: TERIPARATIDE
     Indication: PRODUCT USED FOR UNKNOWN INDICATION
     Route: 058

REACTIONS (4)
  - Dementia [Unknown]
  - Pyrexia [Unknown]
  - Myalgia [Unknown]
  - White blood cell count decreased [Unknown]
